FAERS Safety Report 8391018-5 (Version None)
Quarter: 2012Q2

REPORT INFORMATION
  Report Type: 
  Country: None (occurrence: None)
  Receive Date: 20120529
  Receipt Date: 20120517
  Transmission Date: 20120825
  Serious: Yes (Hospitalization)
  Sender: FDA-Public Use
  Company Number: US-JNJFOC-20120515964

PATIENT
  Age: 50 Year
  Sex: Female
  Weight: 58.97 kg

DRUGS (2)
  1. ACETAMINOPHEN [Suspect]
     Route: 048
  2. ACETAMINOPHEN [Suspect]
     Indication: FIBROMYALGIA
     Dosage: 2-3 CAPLETS DAILY FOR 10 YEARS
     Route: 048
     Dates: start: 20010101, end: 20111101

REACTIONS (4)
  - NAUSEA [None]
  - HEPATIC ENZYME INCREASED [None]
  - ABDOMINAL PAIN [None]
  - INCORRECT DRUG ADMINISTRATION DURATION [None]
